FAERS Safety Report 6266705-5 (Version None)
Quarter: 2009Q3

REPORT INFORMATION
  Report Type: 
  Country: None (occurrence: None)
  Receive Date: 20090714
  Receipt Date: 20071203
  Transmission Date: 20100115
  Serious: Yes (Other)
  Sender: FDA-Public Use
  Company Number: US-ASTRAZENECA-2006UW08067

PATIENT
  Age: 20590 Day
  Sex: Female

DRUGS (12)
  1. SEROQUEL [Suspect]
     Route: 048
     Dates: start: 20021211, end: 20030825
  2. SEROQUEL [Suspect]
     Dosage: 25 TO 300 MG
     Route: 048
     Dates: start: 20021211, end: 20051219
  3. GLIPIZIDE [Concomitant]
     Route: 048
  4. AMITRIPTYLINE [Concomitant]
     Route: 048
  5. LISINOPRIL [Concomitant]
     Dosage: 10 TO 20 MG
     Route: 048
  6. FUROSEMIDE [Concomitant]
  7. NAPROXEN [Concomitant]
     Route: 048
  8. ZOLOFT [Concomitant]
  9. ESTROGENS CONJUGATED [Concomitant]
  10. ABILIFY [Concomitant]
  11. GEODON [Concomitant]
     Dosage: 40 TO 60 MG
  12. PAXIL [Concomitant]
     Dosage: 20 TO 40 MG
     Route: 048

REACTIONS (3)
  - DIABETES MELLITUS [None]
  - DIABETES MELLITUS INADEQUATE CONTROL [None]
  - DIABETIC NEUROPATHY [None]
